FAERS Safety Report 5721322-8 (Version None)
Quarter: 2008Q2

REPORT INFORMATION
  Report Type: 
  Country: None (occurrence: None)
  Receive Date: 20080424
  Receipt Date: 20080416
  Transmission Date: 20081010
  Serious: Yes (Death, Other)
  Sender: FDA-Public Use
  Company Number: GXKR2008DK03677

PATIENT
  Age: 46 Year
  Sex: Male

DRUGS (2)
  1. CYCLOSPORINE [Suspect]
     Indication: IMMUNOSUPPRESSION
     Dosage: 5 MG/KG
     Dates: start: 19890101, end: 20020101
  2. SIROLIMUS (SIROLIMUS) [Concomitant]

REACTIONS (15)
  - ACTINIC KERATOSIS [None]
  - BASAL CELL CARCINOMA [None]
  - BOWEN'S DISEASE [None]
  - CHRONIC ALLOGRAFT NEPHROPATHY [None]
  - COMPLICATIONS OF TRANSPLANTED KIDNEY [None]
  - ERYSIPELAS [None]
  - IMPAIRED HEALING [None]
  - LYMPHANGIOSIS CARCINOMATOSA [None]
  - LYMPHANGITIS [None]
  - MALIGNANT TUMOUR EXCISION [None]
  - METASTASES TO SKIN [None]
  - SKIN PAPILLOMA [None]
  - SQUAMOUS CELL CARCINOMA OF SKIN [None]
  - SURGICAL PROCEDURE REPEATED [None]
  - TRANSPLANT FAILURE [None]
